FAERS Safety Report 23013938 (Version 1)
Quarter: 2023Q4

REPORT INFORMATION
  Report Type: Spontaneous
  Country: US (occurrence: US)
  Receive Date: 20231001
  Receipt Date: 20231001
  Transmission Date: 20240110
  Serious: No
  Sender: FDA-Public Use
  Company Number: US-drreddys-SPO/USA/23/0175218

PATIENT
  Age: 17 Year
  Sex: Female

DRUGS (1)
  1. ZENATANE [Suspect]
     Active Substance: ISOTRETINOIN
     Indication: Acne
     Dosage: RMA ISSUE DATE: 09 FEBRUARY 2023 01:35:09 PM, 16 MARCH 2023 05:03:34 PM, 25 APRIL 2023 12:33:25 PM,

REACTIONS (2)
  - Treatment noncompliance [Unknown]
  - Product administration interrupted [Unknown]
